FAERS Safety Report 17072612 (Version 1)
Quarter: 2019Q4

REPORT INFORMATION
  Report Type: Spontaneous
  Country: SG (occurrence: SG)
  Receive Date: 20191125
  Receipt Date: 20191125
  Transmission Date: 20200122
  Serious: Yes (Hospitalization)
  Sender: FDA-Public Use
  Company Number: SG-ANIPHARMA-2019-SG-000014

PATIENT
  Age: 66 Year
  Sex: Female

DRUGS (8)
  1. DAPAGLIFLOZIN. [Concomitant]
     Active Substance: DAPAGLIFLOZIN
  2. SIMVASTATIN. [Suspect]
     Active Substance: SIMVASTATIN
     Indication: PRODUCT USED FOR UNKNOWN INDICATION
  3. FLUVOXAMINE (NON-SPECIFIC) [Suspect]
     Active Substance: FLUVOXAMINE
     Indication: DEPRESSION
     Dosage: 25 MG
  4. ASPIRIN. [Concomitant]
     Active Substance: ASPIRIN
  5. FENOFIBRATE. [Concomitant]
     Active Substance: FENOFIBRATE
  6. METFORMIN [Concomitant]
     Active Substance: METFORMIN HYDROCHLORIDE
  7. OMEPRAZOLE. [Concomitant]
     Active Substance: OMEPRAZOLE
  8. INSULIN [Concomitant]
     Active Substance: INSULIN NOS
     Route: 058

REACTIONS (2)
  - Chest pain [Recovered/Resolved]
  - Drug interaction [Recovered/Resolved]
